FAERS Safety Report 16836033 (Version 3)
Quarter: 2020Q1

REPORT INFORMATION
  Report Type: Report from Study
  Country: FR (occurrence: FR)
  Receive Date: 20190920
  Receipt Date: 20200114
  Transmission Date: 20200409
  Serious: Yes (Hospitalization, Other)
  Sender: FDA-Public Use
  Company Number: FR-TAKEDA-2019TUS053125

PATIENT
  Sex: Male
  Weight: 73 kg

DRUGS (1)
  1. IXAZOMIB [Suspect]
     Active Substance: IXAZOMIB
     Indication: PLASMA CELL MYELOMA
     Dosage: 4 MILLIGRAM, QD
     Route: 065

REACTIONS (12)
  - Pancreatic carcinoma [Unknown]
  - Tendon rupture [Unknown]
  - Toxic neuropathy [Unknown]
  - Osteoarthritis [Recovering/Resolving]
  - Diabetic neuropathy [Unknown]
  - Cognitive disorder [Unknown]
  - Escherichia bacteraemia [Recovering/Resolving]
  - Paraesthesia [Unknown]
  - Hemiparaesthesia [Unknown]
  - Cerebral amyloid angiopathy [Unknown]
  - Tendon disorder [Unknown]
  - Tendon dislocation [Unknown]

NARRATIVE: CASE EVENT DATE: 20180417
